FAERS Safety Report 8064261-2 (Version None)
Quarter: 2011Q4

REPORT INFORMATION
  Report Type: 
  Country: None (occurrence: None)
  Receive Date: 20111221
  Receipt Date: 20110912
  Transmission Date: 20120403
  Serious: Yes (Other)
  Sender: FDA-Public Use
  Company Number: 2011S1000070

PATIENT
  Age: 42 Year
  Sex: Male
  Weight: 113.3993 kg

DRUGS (11)
  1. SOLU-MEDROL [Concomitant]
  2. BENADRYL  /00945501/ [Concomitant]
  3. TYLENOL (CAPLET) [Concomitant]
  4. FLEXERIL [Concomitant]
  5. ALLOPURINOL [Concomitant]
  6. VITAMIN B-12 [Concomitant]
  7. KRYSTEXXA [Suspect]
     Indication: GOUT
     Dosage: 8 MG;X1; IV
     Route: 042
     Dates: start: 20110907, end: 20110907
  8. KRYSTEXXA [Suspect]
     Indication: GOUT
     Dosage: 8 MG;X1; IV
     Route: 042
     Dates: start: 20110825, end: 20110825
  9. KRYSTEXXA [Suspect]
     Indication: GOUT
     Dosage: 8 MG;X1; IV
     Route: 042
     Dates: start: 20110804, end: 20110804
  10. ULORIC [Concomitant]
  11. PERCOCET [Concomitant]

REACTIONS (2)
  - INFUSION RELATED REACTION [None]
  - THERAPEUTIC RESPONSE DECREASED [None]
